FAERS Safety Report 9686299 (Version 1)
Quarter: 2013Q4

REPORT INFORMATION
  Report Type: Spontaneous
  Country: CN (occurrence: CN)
  Receive Date: 20131113
  Receipt Date: 20131113
  Transmission Date: 20140711
  Serious: Yes (Death, Other)
  Sender: FDA-Public Use
  Company Number: PHHY2013CN128655

PATIENT
  Age: 67 Year
  Sex: Female

DRUGS (11)
  1. CICLOSPORIN [Suspect]
     Indication: PROPHYLAXIS AGAINST TRANSPLANT REJECTION
     Dosage: 6-8 MG/KG, PER DAY
  2. CICLOSPORIN [Suspect]
     Indication: IMMUNOSUPPRESSION
  3. METHYLPREDNISOLONE [Suspect]
     Indication: PROPHYLAXIS AGAINST TRANSPLANT REJECTION
     Dosage: 1000 MG, UNK
  4. METHYLPREDNISOLONE [Suspect]
     Indication: IMMUNOSUPPRESSION
     Dosage: 1000 MG, DAY 3 POST TRANSPLANTATION
     Route: 042
  5. METHYLPREDNISOLONE [Suspect]
     Dosage: 500 MG, DAY 3 POST TRANSPLANTATION
     Route: 042
  6. METHYLPREDNISOLONE [Suspect]
     Dosage: 500 MG, DAY 3 POST TRANSPLANTATION
     Route: 042
  7. METHYLPREDNISOLONE [Suspect]
     Dosage: 32 MG, PER DAY, DAY 4
  8. MYCOPHENOLATE MOFETIL [Suspect]
     Indication: PROPHYLAXIS AGAINST TRANSPLANT REJECTION
  9. MYCOPHENOLATE MOFETIL [Suspect]
     Indication: IMMUNOSUPPRESSION
  10. METHYLPREDNISOLONE [Suspect]
     Indication: PROPHYLAXIS AGAINST TRANSPLANT REJECTION
     Dosage: 4 MG, PER WEEK
  11. METHYLPREDNISOLONE [Suspect]
     Indication: IMMUNOSUPPRESSION
     Dosage: 8 MG, PER DAY

REACTIONS (4)
  - Death [Fatal]
  - Bladder cancer [Unknown]
  - Ureteric cancer [Unknown]
  - Malignant neoplasm progression [Unknown]
